FAERS Safety Report 9261935 (Version 1)
Quarter: 2013Q2

REPORT INFORMATION
  Report Type: Report from Study
  Country: TW (occurrence: TW)
  Receive Date: 20130429
  Receipt Date: 20130429
  Transmission Date: 20140414
  Serious: No
  Sender: FDA-Public Use
  Company Number: PHHY2013TW041262

PATIENT
  Age: 38 Year
  Sex: Male

DRUGS (16)
  1. AMN107 [Suspect]
     Dates: start: 20090813
  2. ACETAMINOPHEN [Concomitant]
     Indication: BONE PAIN
     Dates: end: 20110203
  3. ACETAMINOPHEN [Concomitant]
     Dates: end: 20120315
  4. ACETAMINOPHEN [Concomitant]
     Dates: end: 20120923
  5. BENZYDAMINE [Concomitant]
     Indication: MUCOSAL INFLAMMATION
     Dates: end: 20120105
  6. DEXAMETHASONE [Concomitant]
     Indication: MUCOSAL INFLAMMATION
     Route: 048
     Dates: end: 20110714
  7. DICLOFENAC [Concomitant]
     Indication: CHEST PAIN
     Dates: end: 20120918
  8. ETOFENAMATE [Concomitant]
     Indication: BONE PAIN
     Dosage: UNK 5%, 40 G/TUBE
     Dates: end: 20110324
  9. IBUPROFEN [Concomitant]
     Indication: BONE PAIN
     Dates: end: 20100926
  10. KETOROLAC [Concomitant]
     Indication: CHEST PAIN
     Dates: end: 20120916
  11. NAPROXEN [Concomitant]
     Indication: ARTHRALGIA
     Dates: end: 20120119
  12. OXETHAZAINE [Concomitant]
     Indication: PROPHYLAXIS
     Dates: end: 20120918
  13. PROPRANOLOL [Concomitant]
     Indication: CHEST PAIN
     Dates: end: 20120915
  14. PROPRANOLOL [Concomitant]
     Dates: end: 20121110
  15. RANITIDINE HCL [Concomitant]
  16. TETRACYCLINE [Concomitant]
     Indication: DERMATITIS
     Dates: end: 20121110

REACTIONS (2)
  - Chest pain [Unknown]
  - Dermatitis [Unknown]
